FAERS Safety Report 6318012-X (Version None)
Quarter: 2009Q3

REPORT INFORMATION
  Report Type: 
  Country: None (occurrence: None)
  Receive Date: 20090821
  Receipt Date: 20090806
  Transmission Date: 20100115
  Serious: No
  Sender: FDA-Public Use
  Company Number: B0587474A

PATIENT

DRUGS (1)
  1. RELENZA [Suspect]
     Indication: INFLUENZA
     Dosage: 20MG TWICE PER DAY
     Route: 055

REACTIONS (2)
  - NO ADVERSE EVENT [None]
  - OVERDOSE [None]
